FAERS Safety Report 7868258-4 (Version None)
Quarter: 2011Q4

REPORT INFORMATION
  Report Type: 
  Country: None (occurrence: None)
  Receive Date: 20111028
  Receipt Date: 20111020
  Transmission Date: 20120403
  Serious: Yes (Congenital Anomaly, Other)
  Sender: FDA-Public Use
  Company Number: US-RB-031519-11

PATIENT
  Age: 12 Month
  Sex: Male

DRUGS (1)
  1. SUBOXONE [Suspect]
     Indication: DRUG DEPENDENCE
     Dosage: DOSING INFORMATION UNKNOWN
     Route: 064

REACTIONS (4)
  - SPLEEN DISORDER [None]
  - SPEECH DISORDER DEVELOPMENTAL [None]
  - MATERNAL EXPOSURE DURING PREGNANCY [None]
  - ASTHMA [None]
